FAERS Safety Report 19230855 (Version 1)
Quarter: 2021Q2

REPORT INFORMATION
  Report Type: Spontaneous
  Country: US (occurrence: US)
  Receive Date: 20210507
  Receipt Date: 20210507
  Transmission Date: 20210717
  Serious: Yes (Hospitalization)
  Sender: FDA-Public Use
  Company Number: None

PATIENT
  Age: 65 Year
  Sex: Male

DRUGS (14)
  1. TACROLIMUS. [Suspect]
     Active Substance: TACROLIMUS
     Indication: RENAL TRANSPLANT
     Route: 048
     Dates: start: 20180730
  2. BACTRIM [Concomitant]
     Active Substance: SULFAMETHOXAZOLE\TRIMETHOPRIM
  3. PROTONIX [Concomitant]
     Active Substance: PANTOPRAZOLE SODIUM
  4. MYCOPHENOLATE [Concomitant]
     Active Substance: MYCOPHENOLIC ACID
  5. MINOCYCLINE [Concomitant]
     Active Substance: MINOCYCLINE HYDROCHLORIDE
  6. NORVASC [Concomitant]
     Active Substance: AMLODIPINE BESYLATE
  7. LIPITOR [Concomitant]
     Active Substance: ATORVASTATIN CALCIUM
  8. ALLOPURINOL. [Concomitant]
     Active Substance: ALLOPURINOL
  9. MELATONIN [Concomitant]
     Active Substance: MELATONIN
  10. TOPROL XL [Concomitant]
     Active Substance: METOPROLOL SUCCINATE
  11. SYNTHROID [Concomitant]
     Active Substance: LEVOTHYROXINE SODIUM
  12. PRAVASTATIN. [Concomitant]
     Active Substance: PRAVASTATIN
  13. LEVOXYL [Concomitant]
     Active Substance: LEVOTHYROXINE SODIUM
  14. POTASSIUM [Concomitant]
     Active Substance: POTASSIUM

REACTIONS (1)
  - Transfusion [None]

NARRATIVE: CASE EVENT DATE: 20210319
